FAERS Safety Report 17806218 (Version 1)
Quarter: 2020Q2

REPORT INFORMATION
  Report Type: Spontaneous
  Country: ES (occurrence: ES)
  Receive Date: 20200520
  Receipt Date: 20200520
  Transmission Date: 20200714
  Serious: Yes (Life-Threatening, Hospitalization)
  Sender: FDA-Public Use
  Company Number: ES-DRREDDYS-GER/SPN/19/0108715

PATIENT
  Age: 62 Year
  Sex: Male

DRUGS (7)
  1. SOLTRIM 160MG/ 800MG POLVO Y SOLUCION PARA SOLUCION INYECTABLE , 5 VIA [Suspect]
     Active Substance: SULFAMETHOXAZOLE\TRIMETHOPRIM
     Indication: PRODUCT USED FOR UNKNOWN INDICATION
     Dosage: POWDER AND SOLUTION FOR INJECTABLE SOLUTION, 1 DF, Q12H
     Route: 042
     Dates: start: 20190131, end: 20190205
  2. METOCLOPRAMIDA (1958A) [Concomitant]
     Active Substance: METOCLOPRAMIDE HYDROCHLORIDE
     Indication: PRODUCT USED FOR UNKNOWN INDICATION
     Dosage: 10 MG, Q8H
     Route: 042
     Dates: start: 20190203, end: 20190218
  3. HIDRALAZINA HIDROCLORURO (1720CH) [Suspect]
     Active Substance: HYDRALAZINE HYDROCHLORIDE
     Indication: PRODUCT USED FOR UNKNOWN INDICATION
     Route: 048
     Dates: start: 20190208, end: 20190210
  4. DAPTOMYCIN. [Suspect]
     Active Substance: DAPTOMYCIN
     Indication: RESPIRATORY TRACT INFECTION
     Dosage: 700 MG, QD
     Route: 042
     Dates: start: 20190208, end: 20190211
  5. HIDRALAZINA HIDROCLORURO (1720CH) [Suspect]
     Active Substance: HYDRALAZINE HYDROCHLORIDE
     Dosage: 25 MG, Q8H
     Route: 048
     Dates: start: 20190210, end: 20190211
  6. PANTOPRAZOL (7275A) [Concomitant]
     Active Substance: PANTOPRAZOLE
     Indication: PRODUCT USED FOR UNKNOWN INDICATION
     Dosage: 40 MG, QD
     Route: 042
     Dates: start: 20190204, end: 20190218
  7. LEVOFLOXACINO (2791A) [Suspect]
     Active Substance: LEVOFLOXACIN
     Indication: RESPIRATORY TRACT INFECTION
     Dosage: 500 MG, QD
     Route: 042
     Dates: start: 20190205, end: 20190211

REACTIONS (1)
  - Agranulocytosis [Recovered/Resolved]

NARRATIVE: CASE EVENT DATE: 20190211
